FAERS Safety Report 5501492-7 (Version None)
Quarter: 2007Q4

REPORT INFORMATION
  Report Type: 
  Country: None (occurrence: None)
  Receive Date: 20071019
  Receipt Date: 20070911
  Transmission Date: 20080405
  Serious: Yes (Other)
  Sender: FDA-Public Use
  Company Number: HQWYE156213SEP07

PATIENT
  Age: 76 Year
  Sex: Female
  Weight: 58.11 kg

DRUGS (2)
  1. ADVIL PM [Suspect]
     Indication: INSOMNIA
     Dosage: 2-4 CAPLETS PER NIGHT, ORAL
     Route: 048
     Dates: start: 20070801
  2. DILANTIN [Concomitant]

REACTIONS (3)
  - DRUG EFFECT DECREASED [None]
  - INCORRECT DOSE ADMINISTERED [None]
  - OVERDOSE [None]
